FAERS Safety Report 19988678 (Version 1)
Quarter: 2021Q4

REPORT INFORMATION
  Report Type: Spontaneous
  Country: CH (occurrence: CH)
  Receive Date: 20211024
  Receipt Date: 20211024
  Transmission Date: 20220303
  Serious: Yes (Hospitalization, Other)
  Sender: FDA-Public Use
  Company Number: CH-BOEHRINGERINGELHEIM-2021-BI-133831

PATIENT
  Sex: Female

DRUGS (1)
  1. OFEV [Suspect]
     Active Substance: NINTEDANIB
     Indication: Scleroderma

REACTIONS (2)
  - Diarrhoea [Unknown]
  - Pulmonary hypertension [Unknown]
